FAERS Safety Report 5726929-X (Version None)
Quarter: 2008Q2

REPORT INFORMATION
  Report Type: 
  Country: None (occurrence: None)
  Receive Date: 20080502
  Receipt Date: 20080423
  Transmission Date: 20081010
  Serious: Yes (Other)
  Sender: FDA-Public Use
  Company Number: GB-ABBOTT-08P-167-0448814-00

PATIENT
  Sex: Female

DRUGS (4)
  1. VALPROIC ACID [Suspect]
     Indication: EPILEPSY
     Dosage: 1500 MG DAILY
  2. VALPROIC ACID [Suspect]
     Dosage: 1900 MG DAILY
  3. FOLIC ACID [Concomitant]
     Indication: PROPHYLAXIS
     Dosage: 800 MCG
  4. CLN [Concomitant]
     Indication: DRUG USE FOR UNKNOWN INDICATION
     Dosage: 2 MILLIGRAM DAILY

REACTIONS (2)
  - ABNORMAL LABOUR [None]
  - GRAND MAL CONVULSION [None]
